FAERS Safety Report 8067672-4 (Version None)
Quarter: 2012Q1

REPORT INFORMATION
  Report Type: 
  Country: None (occurrence: None)
  Receive Date: 20120124
  Receipt Date: 20110929
  Transmission Date: 20120608
  Serious: Yes (Death, Hospitalization)
  Sender: FDA-Public Use
  Company Number: RO-ABBOTT-11P-135-0859274-00

PATIENT
  Sex: Female
  Weight: 120 kg

DRUGS (4)
  1. HUMIRA [Suspect]
     Indication: RHEUMATOID ARTHRITIS
     Route: 058
     Dates: start: 20090925, end: 20100916
  2. METHOTREXATE [Suspect]
     Indication: RHEUMATOID ARTHRITIS
     Route: 050
     Dates: start: 20070701, end: 20100922
  3. CELECOXIB [Concomitant]
     Indication: PRODUCT USED FOR UNKNOWN INDICATION
     Dates: start: 20090101, end: 20100101
  4. LEFLUNOMIDE [Suspect]
     Indication: RHEUMATOID ARTHRITIS
     Route: 048
     Dates: start: 20060601, end: 20100922

REACTIONS (6)
  - JAUNDICE [None]
  - ESCHERICHIA URINARY TRACT INFECTION [None]
  - SEPTIC SHOCK [None]
  - CHOLANGIOLITIS [None]
  - SEPSIS [None]
  - MULTI-ORGAN FAILURE [None]
